FAERS Safety Report 5326578-1 (Version None)
Quarter: 2007Q2

REPORT INFORMATION
  Report Type: 
  Country: None (occurrence: None)
  Receive Date: 20070516
  Receipt Date: 20070508
  Transmission Date: 20071010
  Serious: Yes (Other)
  Sender: FDA-Public Use
  Company Number: B0470748A

PATIENT
  Age: 70 Year
  Sex: Male

DRUGS (3)
  1. NIQUITIN CQ LOZENGE [Suspect]
  2. PAINKILLER [Concomitant]
  3. ANGINA MEDICATION [Concomitant]

REACTIONS (8)
  - ACCIDENTAL EXPOSURE [None]
  - DEPENDENCE [None]
  - DRY MOUTH [None]
  - MOOD ALTERED [None]
  - ORAL PAIN [None]
  - PSYCHIATRIC SYMPTOM [None]
  - TONGUE BLACK HAIRY [None]
  - TREMOR [None]
